FAERS Safety Report 17256119 (Version 2)
Quarter: 2020Q1

REPORT INFORMATION
  Report Type: Report from Study
  Country: US (occurrence: US)
  Receive Date: 20200110
  Receipt Date: 20200226
  Transmission Date: 20200409
  Serious: Yes (Hospitalization)
  Sender: FDA-Public Use
  Company Number: US-GLAXOSMITHKLINE-US2020TSO002227

PATIENT
  Sex: Female

DRUGS (2)
  1. ROLAPITANT HYDROCHLORIDE [Suspect]
     Active Substance: ROLAPITANT
     Dosage: 2 DF, 90MG (TAKE 2 TABLETS BY MOUTH 1-2 HOURS)
     Route: 048
  2. ROLAPITANT HYDROCHLORIDE [Suspect]
     Active Substance: ROLAPITANT
     Indication: CERVIX CARCINOMA
     Dosage: 180 MG, EVERY 3 WEEKS
     Route: 065
     Dates: start: 20191120

REACTIONS (1)
  - Adverse drug reaction [Unknown]
